FAERS Safety Report 18308975 (Version 5)
Quarter: 2020Q4

REPORT INFORMATION
  Report Type: Spontaneous
  Country: DE (occurrence: DE)
  Receive Date: 20200924
  Receipt Date: 20201027
  Transmission Date: 20210113
  Serious: Yes (Other)
  Sender: FDA-Public Use
  Company Number: DE-BRISTOL-MYERS SQUIBB COMPANY-BMS-2020-068217

PATIENT
  Sex: Male
  Weight: 70 kg

DRUGS (2)
  1. ELIQUIS [Suspect]
     Active Substance: APIXABAN
     Indication: PORTAL VEIN THROMBOSIS
     Dosage: 5 MILLIGRAM, BID
     Route: 065
     Dates: start: 202003
  2. ELIQUIS [Suspect]
     Active Substance: APIXABAN
     Dosage: DIVIDED THE TABLETS AND TAKES ONLY RANDOMLY
     Route: 065

REACTIONS (16)
  - Blister [Recovered/Resolved]
  - Product label issue [Unknown]
  - Wrong technique in product usage process [Unknown]
  - Genital tract inflammation [Recovering/Resolving]
  - Treatment noncompliance [Unknown]
  - Blood homocysteine increased [Unknown]
  - Skin degenerative disorder [Unknown]
  - Poor quality product administered [Unknown]
  - Acne [Recovering/Resolving]
  - Hypercoagulation [Unknown]
  - Gingival bleeding [Recovered/Resolved]
  - Neurodermatitis [Recovering/Resolving]
  - Contusion [Recovered/Resolved]
  - Product taste abnormal [Unknown]
  - Skin depigmentation [Unknown]
  - Intentional product use issue [Unknown]

NARRATIVE: CASE EVENT DATE: 2020
